FAERS Safety Report 16341164 (Version 1)
Quarter: 2019Q2

REPORT INFORMATION
  Report Type: Other
  Country: GB (occurrence: GB)
  Receive Date: 20190522
  Receipt Date: 20190522
  Transmission Date: 20190711
  Serious: Yes (Life-Threatening, Other)
  Sender: FDA-Public Use
  Company Number: GB-VISTAPHARM, INC.-VER201905-000235

PATIENT

DRUGS (1)
  1. PHENYTOIN. [Suspect]
     Active Substance: PHENYTOIN
     Indication: STATUS EPILEPTICUS
     Dosage: 20 MG/KG OVER AT LEAST 20 MIN

REACTIONS (3)
  - Hypotension [Unknown]
  - Partial seizures [Unknown]
  - Depressed level of consciousness [Unknown]
